FAERS Safety Report 13887612 (Version 1)
Quarter: 2017Q3

REPORT INFORMATION
  Report Type: Spontaneous
  Country: US (occurrence: US)
  Receive Date: 20170821
  Receipt Date: 20170821
  Transmission Date: 20171127
  Serious: Yes (Hospitalization)
  Sender: FDA-Public Use
  Company Number: US-ROCHE-785611

PATIENT
  Age: 2 Year
  Sex: Female
  Weight: 11 kg

DRUGS (5)
  1. METHOTREXATE. [Concomitant]
     Active Substance: METHOTREXATE
     Indication: JUVENILE IDIOPATHIC ARTHRITIS
     Route: 065
  2. ORAPRED [Concomitant]
     Active Substance: PREDNISOLONE SODIUM PHOSPHATE
     Indication: JUVENILE IDIOPATHIC ARTHRITIS
     Route: 065
  3. MOTRIN [Concomitant]
     Active Substance: IBUPROFEN
     Indication: PAIN
     Dosage: PRN
     Route: 065
  4. ACTEMRA [Suspect]
     Active Substance: TOCILIZUMAB
     Indication: STILL^S DISEASE
     Route: 042
     Dates: start: 20110325, end: 20110606
  5. FOLIC ACID. [Concomitant]
     Active Substance: FOLIC ACID
     Dosage: FOLIC ACID 1 MG OD EXCEPT METHOTREXATE DAY, INDICATION: DECREASED FOLIC ACID ON METHOTREXATE
     Route: 065

REACTIONS (4)
  - Diarrhoea [Recovered/Resolved]
  - Subcutaneous abscess [Recovered/Resolved]
  - Vomiting [Recovered/Resolved]
  - Rash generalised [Recovering/Resolving]

NARRATIVE: CASE EVENT DATE: 20110420
